FAERS Safety Report 7713323-5 (Version None)
Quarter: 2011Q3

REPORT INFORMATION
  Report Type: 
  Country: None (occurrence: None)
  Receive Date: 20110826
  Receipt Date: 20110816
  Transmission Date: 20111222
  Serious: Yes (Other)
  Sender: FDA-Public Use
  Company Number: US-JNJFOC-20110808178

PATIENT
  Age: 68 Year
  Sex: Male

DRUGS (5)
  1. STELARA [Suspect]
     Route: 058
     Dates: start: 20110608
  2. STELARA [Suspect]
     Route: 058
     Dates: start: 20110101
  3. AMLODIPINE BESYLATE [Concomitant]
     Indication: HYPERTENSION
  4. STELARA [Suspect]
     Indication: PSORIASIS
     Route: 058
  5. LOSARTAN [Concomitant]
     Indication: HYPERTENSION

REACTIONS (1)
  - NEUTROPENIA [None]
